FAERS Safety Report 8833366 (Version 3)
Quarter: 2014Q3

REPORT INFORMATION
  Report Type: Spontaneous
  Country: US (occurrence: US)
  Receive Date: 20121010
  Receipt Date: 20140806
  Transmission Date: 20150326
  Serious: Yes (Hospitalization, Other)
  Sender: FDA-Public Use
  Company Number: US-009507513-1210USA002407

PATIENT
  Sex: Female
  Weight: 88.89 kg

DRUGS (1)
  1. NUVARING [Suspect]
     Active Substance: ETHINYL ESTRADIOL\ETONOGESTREL
     Indication: CONTRACEPTION
     Dosage: 0.12-0.015MG
     Route: 067
     Dates: start: 20110509, end: 20111108

REACTIONS (4)
  - Pulmonary embolism [Unknown]
  - Chest pain [Unknown]
  - Costochondritis [Unknown]
  - Chlamydial infection [Unknown]

NARRATIVE: CASE EVENT DATE: 201109
